FAERS Safety Report 5858164-9 (Version None)
Quarter: 2008Q3

REPORT INFORMATION
  Report Type: 
  Country: None (occurrence: None)
  Receive Date: 20080826
  Receipt Date: 20080821
  Transmission Date: 20090109
  Serious: Yes (Death)
  Sender: FDA-Public Use
  Company Number: A0702041A

PATIENT
  Age: 48 Year
  Sex: Male
  Weight: 102.7 kg

DRUGS (1)
  1. AVANDIA [Suspect]
     Dosage: 4MG PER DAY
     Route: 048
     Dates: start: 20000701, end: 20051202

REACTIONS (4)
  - BLINDNESS [None]
  - HEART INJURY [None]
  - MYOCARDIAL INFARCTION [None]
  - RETINOPATHY [None]
